FAERS Safety Report 7910026-9 (Version None)
Quarter: 2011Q4

REPORT INFORMATION
  Report Type: 
  Country: None (occurrence: None)
  Receive Date: 20111111
  Receipt Date: 20111109
  Transmission Date: 20120403
  Serious: Yes (Death)
  Sender: FDA-Public Use
  Company Number: GB-ABBOTT-11P-167-0872758-00

PATIENT

DRUGS (1)
  1. HUMIRA [Suspect]
     Indication: DERMATOMYOSITIS

REACTIONS (1)
  - DEATH [None]
